FAERS Safety Report 6555130-5 (Version None)
Quarter: 2010Q1

REPORT INFORMATION
  Report Type: 
  Country: None (occurrence: None)
  Receive Date: 20100125
  Receipt Date: 20100125
  Transmission Date: 20100710
  Serious: Yes (Other)
  Sender: FDA-Public Use
  Company Number: None

PATIENT
  Age: 21 Year
  Sex: Male
  Weight: 79.3 kg

DRUGS (3)
  1. BUPRENORPHINE HCL AND NALOXONE HCL [Suspect]
     Indication: DRUG LEVEL
     Dosage: 8MG/2MG, SUBLINGUAL
     Route: 060
     Dates: start: 20091019, end: 20091019
  2. NALTREXONE (NALTREXONE HYDROCHLORIDE) [Suspect]
     Indication: PROPHYLAXIS
     Dosage: 50 MG X 2 50 MG X 2
     Dates: start: 20091018, end: 20091018
  3. NALTREXONE (NALTREXONE HYDROCHLORIDE) [Suspect]
     Indication: PROPHYLAXIS
     Dosage: 50 MG X 2 50 MG X 2
     Dates: start: 20091019, end: 20091019

REACTIONS (13)
  - ABDOMINAL PAIN [None]
  - BLOOD GLUCOSE INCREASED [None]
  - BLOOD PRESSURE SYSTOLIC DECREASED [None]
  - FALL [None]
  - HEADACHE [None]
  - HEART RATE DECREASED [None]
  - MOVEMENT DISORDER [None]
  - NAUSEA [None]
  - NECK PAIN [None]
  - RESTLESSNESS [None]
  - SINUS BRADYCARDIA [None]
  - SYNCOPE [None]
  - UNRESPONSIVE TO STIMULI [None]
